FAERS Safety Report 9377078 (Version 1)
Quarter: 2013Q3

REPORT INFORMATION
  Report Type: Spontaneous
  Country: US (occurrence: US)
  Receive Date: 20130701
  Receipt Date: 20130701
  Transmission Date: 20140515
  Serious: No
  Sender: FDA-Public Use
  Company Number: US-009507513-1306USA013284

PATIENT
  Age: 24 Year
  Sex: Female
  Weight: 69.84 kg

DRUGS (1)
  1. NEXPLANON [Suspect]
     Indication: CONTRACEPTION
     Dosage: 3 YEAR IMPLANT
     Route: 059
     Dates: start: 20130621

REACTIONS (3)
  - Device deployment issue [Unknown]
  - Product quality issue [Unknown]
  - No adverse event [Unknown]
